FAERS Safety Report 6626887-X (Version None)
Quarter: 2010Q1

REPORT INFORMATION
  Report Type: 
  Country: None (occurrence: None)
  Receive Date: 20100311
  Receipt Date: 20100225
  Transmission Date: 20100710
  Serious: Yes (Life-Threatening, Other)
  Sender: FDA-Public Use
  Company Number: GB-RANBAXY-2010RR-32192

PATIENT
  Age: 42 Year
  Sex: Male

DRUGS (1)
  1. ACYCLOVIR [Suspect]
     Indication: HERPES VIRUS INFECTION
     Dosage: 400 MG, BID
     Route: 048
     Dates: start: 20100118, end: 20100208

REACTIONS (1)
  - SUICIDAL IDEATION [None]
